FAERS Safety Report 13342107 (Version 1)
Quarter: 2017Q1

REPORT INFORMATION
  Report Type: Spontaneous
  Country: US (occurrence: US)
  Receive Date: 20170316
  Receipt Date: 20170316
  Transmission Date: 20170428
  Serious: Yes (Life-Threatening, Hospitalization)
  Sender: FDA-Public Use
  Company Number: None

PATIENT
  Age: 72 Year
  Sex: Female
  Weight: 63.56 kg

DRUGS (15)
  1. VERDROCET [Suspect]
     Active Substance: ACETAMINOPHEN\HYDROCODONE BITARTRATE
  2. BIOTIN [Concomitant]
     Active Substance: BIOTIN
  3. LORTAB [Suspect]
     Active Substance: ACETAMINOPHEN\HYDROCODONE BITARTRATE
  4. VITAMIN D3 [Concomitant]
     Active Substance: CHOLECALCIFEROL
  5. NORCO [Suspect]
     Active Substance: ACETAMINOPHEN\HYDROCODONE BITARTRATE
  6. XODOL [Suspect]
     Active Substance: ACETAMINOPHEN\HYDROCODONE BITARTRATE
  7. ALPRAZOLAM. [Concomitant]
     Active Substance: ALPRAZOLAM
  8. MAGNESIUM [Concomitant]
     Active Substance: MAGNESIUM
  9. HYDROCODONE BITARTRATE. [Suspect]
     Active Substance: HYDROCODONE BITARTRATE
     Indication: DRUG THERAPY
     Dosage: SEVRAL INJECTIONS 3-6 TIMES IN ONE AFTERNOON INJECTED INTO MY I.V.
     Route: 042
     Dates: start: 20170301, end: 20170301
  10. VICODIN [Suspect]
     Active Substance: ACETAMINOPHEN\HYDROCODONE BITARTRATE
  11. HYCET [Suspect]
     Active Substance: ACETAMINOPHEN\HYDROCODONE BITARTRATE
  12. LORCET [Suspect]
     Active Substance: ACETAMINOPHEN\HYDROCODONE BITARTRATE
  13. VITAMIN B12 [Concomitant]
     Active Substance: CYANOCOBALAMIN
  14. CALCIUM [Concomitant]
     Active Substance: CALCIUM
  15. ZINC. [Concomitant]
     Active Substance: ZINC

REACTIONS (6)
  - Gastrointestinal disorder [None]
  - Vision blurred [None]
  - Heart rate decreased [None]
  - Dizziness [None]
  - Vomiting projectile [None]
  - Constipation [None]

NARRATIVE: CASE EVENT DATE: 20170301
